FAERS Safety Report 8342849-9 (Version None)
Quarter: 2012Q2

REPORT INFORMATION
  Report Type: 
  Country: None (occurrence: None)
  Receive Date: 20120508
  Receipt Date: 20120507
  Transmission Date: 20120825
  Serious: Yes (Other)
  Sender: FDA-Public Use
  Company Number: US-PFIZER INC-2012111474

PATIENT
  Sex: Male
  Weight: 92.971 kg

DRUGS (4)
  1. PRILOSEC [Concomitant]
     Indication: DYSPEPSIA
     Dosage: 40 MG, DAILY
  2. BENTYL [Concomitant]
     Indication: DIARRHOEA
     Dosage: 10 MG, DAILY
  3. CHANTIX [Suspect]
     Indication: SMOKING CESSATION THERAPY
     Dosage: HALF A TABLET OF 1MG TABLET DAILY
     Route: 048
     Dates: start: 20120401, end: 20120401
  4. BENTYL [Concomitant]
     Indication: DYSPEPSIA

REACTIONS (1)
  - DEPRESSION [None]
